FAERS Safety Report 4305658-3 (Version None)
Quarter: 2004Q1

REPORT INFORMATION
  Report Type: 
  Country: None (occurrence: None)
  Receive Date: 20040226
  Receipt Date: 20031230
  Transmission Date: 20041129
  Serious: Yes (Other)
  Sender: FDA-Public Use
  Company Number: US-BRISTOL-MYERS SQUIBB COMPANY-12467270

PATIENT
  Age: 28 Year
  Sex: Female

DRUGS (3)
  1. ABILIFY [Suspect]
     Indication: DELUSIONAL DISORDER, UNSPECIFIED TYPE
     Dosage: INITIAL DOSE:15 MG/DAY 18-MAR-2003, INC. TO 20 MG/DAY ON 19-SEP-2003, DEC. TO 15 MG/DAY ON 30-DEC
     Route: 048
     Dates: start: 20030318
  2. KLONOPIN [Concomitant]
  3. BUSPAR [Concomitant]

REACTIONS (2)
  - ANXIETY [None]
  - TARDIVE DYSKINESIA [None]
